FAERS Safety Report 4907175-6 (Version None)
Quarter: 2006Q1

REPORT INFORMATION
  Report Type: 
  Country: None (occurrence: None)
  Receive Date: 20060206
  Receipt Date: 20060202
  Transmission Date: 20060701
  Serious: Yes (Death, Life-Threatening, Hospitalization)
  Sender: FDA-Public Use
  Company Number: HQWYE489624JAN06

PATIENT
  Age: 67 Year
  Sex: Male

DRUGS (11)
  1. RAPAMUNE [Suspect]
     Indication: PROPHYLAXIS AGAINST TRANSPLANT REJECTION
     Dosage: 5 MG 1X PER 1 DAY ORAL; 3 MG 1X PER 1 DAY ORAL
     Route: 048
     Dates: end: 20060120
  2. RAPAMUNE [Suspect]
     Indication: PROPHYLAXIS AGAINST TRANSPLANT REJECTION
     Dosage: 5 MG 1X PER 1 DAY ORAL; 3 MG 1X PER 1 DAY ORAL
     Route: 048
     Dates: start: 20051226
  3. MYCOPHENOLATE MOFETIL (MYCOPHENOLATE MOFETIL) [Suspect]
     Indication: IMMUNOSUPPRESSANT DRUG THERAPY
     Dosage: 1000 MG 2X PER 1 DAY ORAL
     Route: 048
     Dates: start: 20051226, end: 20060120
  4. PREDNISOLONE [Suspect]
     Indication: IMMUNOSUPPRESSANT DRUG THERAPY
     Dosage: 20 MG 1X PER 1 DAY ORAL
     Route: 048
     Dates: start: 20051226
  5. FLUOXETINE [Concomitant]
  6. CLARITHROMYCIN [Concomitant]
  7. ATORVASTATIN CALCIUM [Concomitant]
  8. SULFAMETHOXAZOLE + TRIMETHOPRIM [Concomitant]
  9. FUROSEMIDE [Concomitant]
  10. ASPIRIN [Concomitant]
  11. CYCLIZINE (CYCLIZINE) [Concomitant]

REACTIONS (8)
  - CIRCULATORY COLLAPSE [None]
  - COMPLICATIONS OF TRANSPLANTED KIDNEY [None]
  - FUNGAL INFECTION [None]
  - ILIAC VEIN OCCLUSION [None]
  - INFECTION [None]
  - MULTI-ORGAN FAILURE [None]
  - SEPSIS [None]
  - TRANSPLANT ABSCESS [None]
